FAERS Safety Report 7819388-4 (Version None)
Quarter: 2011Q4

REPORT INFORMATION
  Report Type: 
  Country: None (occurrence: None)
  Receive Date: 20111018
  Receipt Date: 20110113
  Transmission Date: 20120403
  Serious: No
  Sender: FDA-Public Use
  Company Number: US-ASTRAZENECA-2011SE02390

PATIENT
  Age: 55 Year
  Sex: Female
  Weight: 78 kg

DRUGS (8)
  1. ATENOLOL [Concomitant]
     Indication: BLOOD PRESSURE ABNORMAL
  2. SYMBICORT [Suspect]
     Indication: DYSPNOEA
     Dosage: TOTAL DAILY DOSAGE: 320 MCG, FREQUENCY: TWO TIMES A DAY.
     Route: 055
     Dates: start: 20101001
  3. LORTAB [Concomitant]
  4. PRAVASTATIN [Concomitant]
     Indication: BLOOD CHOLESTEROL ABNORMAL
  5. LYRICA [Concomitant]
  6. POTASSIUM [Concomitant]
  7. ESTRADIOL [Concomitant]
  8. XANAX [Concomitant]
     Dosage: AT NIGHT.

REACTIONS (5)
  - NASOPHARYNGITIS [None]
  - SINUS DISORDER [None]
  - OROPHARYNGEAL PAIN [None]
  - COUGH [None]
  - DRY THROAT [None]
